FAERS Safety Report 11143031 (Version 1)
Quarter: 2015Q2

REPORT INFORMATION
  Report Type: Spontaneous
  Country: IT (occurrence: IT)
  Receive Date: 20150528
  Receipt Date: 20150528
  Transmission Date: 20150821
  Serious: Yes (Hospitalization)
  Sender: FDA-Public Use
  Company Number: IT-AUROBINDO-AUR-APL-2015-04624

PATIENT
  Age: 21 Year
  Sex: Female

DRUGS (3)
  1. TOPAMAX [Concomitant]
     Active Substance: TOPIRAMATE
     Indication: TENSION HEADACHE
     Dosage: UNK
     Route: 065
  2. LEVOFLOXACIN AUROBINDO FILM-COATED TABLETS 500MG [Suspect]
     Active Substance: LEVOFLOXACIN
     Indication: TONSILLITIS
     Dosage: 500 MG, TOTAL
     Route: 048
     Dates: start: 20150419, end: 20150419
  3. CEFIXORAL [Concomitant]
     Active Substance: CEFIXIME
     Indication: TONSILLITIS
     Dosage: 400 MG, TOTAL (1 TABLET)
     Route: 048
     Dates: start: 20150420

REACTIONS (3)
  - Urticaria [Recovered/Resolved]
  - Throat tightness [Recovered/Resolved]
  - Pruritus [Recovered/Resolved]

NARRATIVE: CASE EVENT DATE: 20150419
